FAERS Safety Report 10674275 (Version 1)
Quarter: 2014Q4

REPORT INFORMATION
  Report Type: Spontaneous
  Country: US (occurrence: None)
  Receive Date: 20141209
  Receipt Date: 20141209
  Transmission Date: 20150529
  Serious: Yes (Hospitalization, Other)
  Sender: FDA-Public Use
  Company Number: 416945

PATIENT
  Age: 58 Year
  Sex: Female

DRUGS (1)
  1. NOVOLOG [Suspect]
     Active Substance: INSULIN ASPART
     Indication: TYPE 1 DIABETES MELLITUS
     Dosage: PUMP
     Route: 058

REACTIONS (4)
  - Diabetic ketoacidosis [None]
  - Product quality issue [None]
  - Blood glucose decreased [None]
  - Blood glucose increased [None]

NARRATIVE: CASE EVENT DATE: 201404
